APPROVED DRUG PRODUCT: IBUPROFEN
Active Ingredient: IBUPROFEN
Strength: 400MG
Dosage Form/Route: TABLET;ORAL
Application: A071231 | Product #001
Applicant: PH HEALTH LTD
Approved: Oct 22, 1986 | RLD: No | RS: No | Type: DISCN